FAERS Safety Report 25950540 (Version 1)
Quarter: 2025Q4

REPORT INFORMATION
  Report Type: Spontaneous
  Country: US (occurrence: US)
  Receive Date: 20251023
  Receipt Date: 20251023
  Transmission Date: 20260117
  Serious: No
  Sender: CATALENT PHARMA SOLUTIONS
  Company Number: US-CATALENT PHARMA SOLUTIONS-CAT-000842-2025

PATIENT
  Age: 74 Year
  Sex: Female

DRUGS (1)
  1. CETIRIZINE [Suspect]
     Active Substance: CETIRIZINE HYDROCHLORIDE
     Indication: Hypersensitivity
     Dosage: TAKEN 1 DOSAGE FORM, ONCE
     Route: 065
     Dates: start: 20250528, end: 20250528

REACTIONS (1)
  - Somnolence [Not Recovered/Not Resolved]

NARRATIVE: CASE EVENT DATE: 20250528
